FAERS Safety Report 5470191-2 (Version None)
Quarter: 2007Q3

REPORT INFORMATION
  Report Type: 
  Country: None (occurrence: None)
  Receive Date: 20070927
  Receipt Date: 20070925
  Transmission Date: 20080115
  Serious: Yes (Life-Threatening)
  Sender: FDA-Public Use
  Company Number: JP-GENENTECH-248354

PATIENT
  Age: 75 Year
  Sex: Male

DRUGS (1)
  1. ACTIVASE [Suspect]
     Indication: CEREBRAL INFARCTION
     Dosage: 20.18 MIU, UNK
     Route: 042
     Dates: start: 20070914

REACTIONS (1)
  - PANCREATITIS ACUTE [None]
